FAERS Safety Report 23617412 (Version 1)
Quarter: 2024Q1

REPORT INFORMATION
  Report Type: Spontaneous
  Country: US (occurrence: None)
  Receive Date: 20240310
  Receipt Date: 20240310
  Transmission Date: 20240409
  Serious: No
  Sender: FDA-Public Use
  Company Number: None

PATIENT
  Age: 23 Year
  Sex: Male
  Weight: 81 kg

DRUGS (1)
  1. DUPIXENT [Suspect]
     Active Substance: DUPILUMAB
     Indication: Eczema
     Route: 058
     Dates: start: 20240223, end: 20240223

REACTIONS (2)
  - Erythema [None]
  - Lymphadenopathy [None]

NARRATIVE: CASE EVENT DATE: 20240229
